FAERS Safety Report 7322611-6 (Version None)
Quarter: 2011Q1

REPORT INFORMATION
  Report Type: 
  Country: None (occurrence: None)
  Receive Date: 20110301
  Receipt Date: 20100204
  Transmission Date: 20110831
  Serious: No
  Sender: FDA-Public Use
  Company Number: US-PFIZER INC-2010005905

PATIENT
  Sex: Female
  Weight: 59.9 kg

DRUGS (6)
  1. ACETYLSALICYLIC ACID [Concomitant]
     Indication: PALPITATIONS
     Dosage: UNK
  2. GLUCOTROL XL [Interacting]
     Indication: DIABETES MELLITUS
     Dosage: 2.5 MG, 1X/DAY
     Dates: start: 20070301, end: 20091221
  3. LANOXIN [Interacting]
     Dosage: UNK
  4. WARFARIN SODIUM [Interacting]
     Dosage: UNK
  5. COZAAR [Suspect]
     Dosage: UNK
  6. ZETIA [Suspect]
     Dosage: UNK

REACTIONS (12)
  - INHIBITORY DRUG INTERACTION [None]
  - DRY EYE [None]
  - PAIN IN EXTREMITY [None]
  - POLLAKIURIA [None]
  - URINARY INCONTINENCE [None]
  - ABASIA [None]
  - ALOPECIA [None]
  - DIZZINESS [None]
  - NIGHT SWEATS [None]
  - BACK PAIN [None]
  - PAIN [None]
  - DRUG INEFFECTIVE [None]
